FAERS Safety Report 9750815 (Version 1)
Quarter: 2013Q4

REPORT INFORMATION
  Report Type: Report from Study
  Country: IT (occurrence: IT)
  Receive Date: 20131212
  Receipt Date: 20131212
  Transmission Date: 20140711
  Serious: Yes (Other)
  Sender: FDA-Public Use
  Company Number: IT-BAXTER-2013BAX050356

PATIENT
  Sex: 0

DRUGS (5)
  1. ENDOXAN BAXTER [Suspect]
     Indication: PLASMA CELL MYELOMA
  2. POMALIDOMIDE [Suspect]
     Indication: PLASMA CELL MYELOMA
     Dosage: 1 TO 2.5 MG
     Route: 048
  3. POMALIDOMIDE [Suspect]
     Indication: ADJUVANT THERAPY
  4. PREDNISONE [Suspect]
     Indication: PLASMA CELL MYELOMA
  5. PREDNISONE [Suspect]
     Indication: ADJUVANT THERAPY

REACTIONS (1)
  - Disease progression [Unknown]
